FAERS Safety Report 8124825-4 (Version None)
Quarter: 2012Q1

REPORT INFORMATION
  Report Type: 
  Country: None (occurrence: None)
  Receive Date: 20120209
  Receipt Date: 20120203
  Transmission Date: 20120608
  Serious: Yes (Death)
  Sender: FDA-Public Use
  Company Number: FR-PFIZER INC-2012031847

PATIENT
  Age: 72 Year
  Sex: Male

DRUGS (7)
  1. ORENCIA [Suspect]
     Indication: RHEUMATOID ARTHRITIS
     Dosage: 1 DF, MONTHLY
     Route: 042
     Dates: start: 20100112, end: 20111001
  2. METFORMIN HCL [Suspect]
     Dosage: 2 DF, UNK
     Route: 048
  3. HYDROCORTISONE [Suspect]
     Indication: RHEUMATOID ARTHRITIS
     Dosage: 20 MG, UNK
     Route: 048
     Dates: start: 20111201
  4. ACTONEL [Suspect]
     Indication: OSTEOPOROSIS
     Dosage: 1 DF, WEEKLY
     Route: 048
  5. COLECALCIFEROL [Suspect]
     Dosage: 1 DF, UNK
     Route: 048
  6. IRBESARTAN [Suspect]
     Indication: HYPERTENSION
     Dosage: 150 MG, UNK
     Route: 048
  7. PANTOPRAZOLE SODIUM [Suspect]
     Indication: HIATUS HERNIA
     Dosage: 20 MG, DAILY
     Route: 048

REACTIONS (3)
  - CYTOLYTIC HEPATITIS [None]
  - CHOLESTASIS [None]
  - JAUNDICE [None]
